FAERS Safety Report 18315510 (Version 1)
Quarter: 2020Q3

REPORT INFORMATION
  Report Type: Spontaneous
  Country: HR (occurrence: HR)
  Receive Date: 20200926
  Receipt Date: 20200926
  Transmission Date: 20201103
  Serious: Yes (Other)
  Sender: FDA-Public Use
  Company Number: HR-SERVIER-S20009373

PATIENT

DRUGS (8)
  1. TN UNSPECIFIED [Concomitant]
     Indication: NEUTROPENIA
     Dosage: 300 ?G
     Route: 058
     Dates: start: 20191212
  2. TN UNSPECIFIED [Concomitant]
     Indication: PROPHYLAXIS
     Dosage: 5000 IU
     Route: 058
     Dates: start: 20191212
  3. TN UNSPECIFIED [Concomitant]
     Indication: PROPHYLAXIS
     Dosage: 2000 MG
     Route: 048
     Dates: start: 20191212
  4. ONCASPAR [Suspect]
     Active Substance: PEGASPARGASE
     Indication: ACUTE LYMPHOCYTIC LEUKAEMIA
     Dosage: 1500 IU, ON DAY 8
     Route: 042
  5. TN UNSPECIFIED [Concomitant]
     Indication: PROPHYLAXIS
     Dosage: 40 MG
     Route: 048
     Dates: start: 20191212
  6. ONCASPAR [Suspect]
     Active Substance: PEGASPARGASE
     Dosage: 1500 IU
     Route: 042
     Dates: start: 20200106
  7. TN UNSPECIFIED [Concomitant]
     Indication: PROPHYLAXIS
     Dosage: 800 MG
     Route: 048
     Dates: start: 20191212
  8. TN UNSPECIFIED [Concomitant]
     Indication: PROPHYLAXIS
     Dosage: 50 MG
     Route: 042
     Dates: start: 20191212

REACTIONS (2)
  - Hypofibrinogenaemia [Recovered/Resolved]
  - Antithrombin III decreased [Not Recovered/Not Resolved]

NARRATIVE: CASE EVENT DATE: 20200102
